FAERS Safety Report 23667469 (Version 2)
Quarter: 2024Q3

REPORT INFORMATION
  Report Type: Spontaneous
  Country: US (occurrence: US)
  Receive Date: 20240325
  Receipt Date: 20240710
  Transmission Date: 20241016
  Serious: No
  Sender: BIOVITRUM
  Company Number: US-BIOVITRUM-2024-US-004427

PATIENT
  Age: 8 Month
  Sex: Male

DRUGS (2)
  1. SYNAGIS [Suspect]
     Active Substance: PALIVIZUMAB
     Indication: Premature baby
     Dosage: EVERY 28 DAYS TO 30 DAYS
     Route: 030
     Dates: start: 20231125
  2. SYNAGIS [Suspect]
     Active Substance: PALIVIZUMAB
     Dosage: EVERY 28DAYS - 30DAYS
     Route: 030
     Dates: start: 20231125

REACTIONS (2)
  - Cough [Recovering/Resolving]
  - Nasal congestion [Recovering/Resolving]
